FAERS Safety Report 19396706 (Version 1)
Quarter: 2021Q2

REPORT INFORMATION
  Report Type: Spontaneous
  Country: JP (occurrence: JP)
  Receive Date: 20210609
  Receipt Date: 20210609
  Transmission Date: 20210717
  Serious: Yes (Other)
  Sender: FDA-Public Use
  Company Number: JP-GLAXOSMITHKLINE-JPCH2021GSK036450

PATIENT
  Sex: Male

DRUGS (3)
  1. TERBINAFINE. [Suspect]
     Active Substance: TERBINAFINE
     Indication: DERMATOPHYTOSIS OF NAIL
     Dosage: UNK
     Route: 048
     Dates: start: 201910, end: 202003
  2. LEVOFLOXACIN. [Suspect]
     Active Substance: LEVOFLOXACIN
     Indication: BACTERIAL INFECTION
     Dosage: 500 MG, 1D
     Dates: end: 202003
  3. TERBINAFINE HYDROCHLORIDE. [Suspect]
     Active Substance: TERBINAFINE HYDROCHLORIDE
     Indication: STASIS DERMATITIS
     Dosage: UNK
     Route: 061

REACTIONS (4)
  - Therapeutic product effect incomplete [Unknown]
  - Drug resistance [Unknown]
  - Pathogen resistance [Unknown]
  - Treatment noncompliance [Unknown]
